FAERS Safety Report 13085661 (Version 1)
Quarter: 2017Q1

REPORT INFORMATION
  Report Type: Spontaneous
  Country: US (occurrence: US)
  Receive Date: 20170103
  Receipt Date: 20170103
  Transmission Date: 20170428
  Serious: Yes (Other)
  Sender: FDA-Public Use
  Company Number: None

PATIENT
  Age: 24 Year
  Sex: Female
  Weight: 100.8 kg

DRUGS (5)
  1. ZOLFOT [Concomitant]
  2. PROPRANOLOL [Suspect]
     Active Substance: PROPRANOLOL HYDROCHLORIDE
     Indication: MIGRAINE
     Dosage: QUANTITY:2 TABLET(S); TWICE A DAY; ORAL?
     Route: 048
     Dates: start: 20160101, end: 20161031
  3. PROPRANOLOL [Suspect]
     Active Substance: PROPRANOLOL HYDROCHLORIDE
     Indication: HYPERTENSION
     Dosage: QUANTITY:2 TABLET(S); TWICE A DAY; ORAL?
     Route: 048
     Dates: start: 20160101, end: 20161031
  4. VALSARTAN HCTZ [Concomitant]
     Active Substance: HYDROCHLOROTHIAZIDE\VALSARTAN
  5. IMITREZ [Concomitant]

REACTIONS (4)
  - Impaired work ability [None]
  - Diarrhoea [None]
  - Abdominal pain upper [None]
  - Economic problem [None]

NARRATIVE: CASE EVENT DATE: 20161001
